FAERS Safety Report 23319038 (Version 1)
Quarter: 2023Q4

REPORT INFORMATION
  Report Type: Spontaneous
  Country: GB (occurrence: GB)
  Receive Date: 20231220
  Receipt Date: 20231220
  Transmission Date: 20240109
  Serious: Yes (Death)
  Sender: FDA-Public Use
  Company Number: None

PATIENT

DRUGS (2)
  1. WARFARIN [Suspect]
     Active Substance: WARFARIN
     Route: 065
  2. TRAMADOL [Suspect]
     Active Substance: TRAMADOL\TRAMADOL HYDROCHLORIDE
     Indication: Back pain
     Route: 065

REACTIONS (5)
  - Labelled drug-drug interaction medication error [Fatal]
  - International normalised ratio increased [Fatal]
  - Pyelonephritis [Fatal]
  - Subarachnoid haemorrhage [Fatal]
  - Malaise [Fatal]

NARRATIVE: CASE EVENT DATE: 20210108
